FAERS Safety Report 7027374-X (Version None)
Quarter: 2010Q4

REPORT INFORMATION
  Report Type: 
  Country: None (occurrence: None)
  Receive Date: 20101004
  Receipt Date: 20100930
  Transmission Date: 20110411
  Serious: Yes (Death, Other)
  Sender: FDA-Public Use
  Company Number: PHHY2010JP57839

PATIENT
  Age: 48 Year
  Sex: Male

DRUGS (15)
  1. AFINITOR [Suspect]
     Indication: METASTATIC RENAL CELL CARCINOMA
     Dosage: 5 MG, QD
     Route: 048
     Dates: start: 20100526, end: 20100607
  2. AFINITOR [Suspect]
     Dosage: 5 MG
     Route: 048
     Dates: start: 20100608, end: 20100701
  3. PURSENNID [Concomitant]
     Dosage: 24 MG
     Route: 048
     Dates: start: 20080101, end: 20100701
  4. INTERFERON ALFA [Concomitant]
     Indication: METASTATIC RENAL CELL CARCINOMA
     Dosage: 3000000IU
     Dates: start: 20080602, end: 20091120
  5. SORAFENIB TOSILATE [Concomitant]
     Indication: METASTATIC RENAL CELL CARCINOMA
     Dosage: 200 MG, 400 MG
     Route: 048
     Dates: start: 20091128, end: 20100317
  6. PREDONINE [Concomitant]
     Dosage: 5 MG
     Route: 048
     Dates: start: 20080101, end: 20100701
  7. RENAGEL [Concomitant]
     Dosage: 4750 MG
     Route: 048
     Dates: start: 20080101, end: 20100701
  8. HICEE [Concomitant]
     Dosage: 2.4 G
     Route: 048
     Dates: start: 20080101, end: 20100701
  9. PODONIN [Concomitant]
     Dosage: 2 G
     Route: 048
     Dates: start: 20080101, end: 20100701
  10. AMOBAN [Concomitant]
     Dosage: 7.5 MG
     Route: 048
     Dates: start: 20080101, end: 20100701
  11. MOBIC [Concomitant]
     Dosage: 10 MG
     Route: 048
     Dates: start: 20080101, end: 20100701
  12. SHAKUYAKUKANZOUBUSHITOU [Concomitant]
     Dosage: 2.5G
     Route: 048
     Dates: start: 20080101, end: 20100701
  13. GASTER [Concomitant]
     Dosage: 10 MG
     Route: 048
     Dates: start: 20080101, end: 20100701
  14. FERROMIA [Concomitant]
     Dosage: 50 MG
     Route: 048
     Dates: start: 20080101, end: 20100701
  15. OXYCONTIN [Concomitant]
     Dosage: 30 MG
     Route: 048
     Dates: start: 20100519, end: 20100701

REACTIONS (5)
  - ANAEMIA [None]
  - GENERAL PHYSICAL HEALTH DETERIORATION [None]
  - MALIGNANT NEOPLASM PROGRESSION [None]
  - PLATELET COUNT DECREASED [None]
  - PNEUMONIA BACTERIAL [None]
